FAERS Safety Report 7619539-0 (Version None)
Quarter: 2011Q3

REPORT INFORMATION
  Report Type: 
  Country: None (occurrence: None)
  Receive Date: 20110719
  Receipt Date: 20110707
  Transmission Date: 20111222
  Serious: Yes (Hospitalization, Other)
  Sender: FDA-Public Use
  Company Number: NZ-JNJFOC-20110703482

PATIENT
  Sex: Male
  Weight: 112 kg

DRUGS (5)
  1. HUMIRA [Suspect]
     Indication: PRODUCT USED FOR UNKNOWN INDICATION
     Dates: start: 20100601
  2. HUMIRA [Suspect]
     Dates: end: 20090801
  3. REMICADE [Suspect]
     Indication: PRODUCT USED FOR UNKNOWN INDICATION
     Route: 042
     Dates: start: 20080101
  4. REMICADE [Suspect]
     Route: 042
     Dates: start: 20100701
  5. HUMIRA [Suspect]
     Dates: start: 20091101

REACTIONS (5)
  - DEAFNESS [None]
  - TINNITUS [None]
  - EAR CONGESTION [None]
  - VERTIGO [None]
  - HOSPITALISATION [None]
